FAERS Safety Report 7719630-4 (Version None)
Quarter: 2011Q3

REPORT INFORMATION
  Report Type: 
  Country: None (occurrence: None)
  Receive Date: 20110830
  Receipt Date: 20110823
  Transmission Date: 20111222
  Serious: Yes (Other)
  Sender: FDA-Public Use
  Company Number: US-GENENTECH-323469

PATIENT
  Sex: Female

DRUGS (3)
  1. ALLEGRA [Concomitant]
     Indication: PRODUCT USED FOR UNKNOWN INDICATION
  2. ADVIL LIQUI-GELS [Concomitant]
  3. XOLAIR [Suspect]
     Indication: PRODUCT USED FOR UNKNOWN INDICATION
     Dosage: 375 MG, UNK

REACTIONS (7)
  - BLOOD PRESSURE DECREASED [None]
  - PARAESTHESIA [None]
  - HEADACHE [None]
  - COUGH [None]
  - DYSPNOEA [None]
  - DYSGEUSIA [None]
  - PRURITUS [None]
